FAERS Safety Report 8872261 (Version 1)
Quarter: 2012Q4

REPORT INFORMATION
  Report Type: 
  Country: US (occurrence: US)
  Receive Date: 20121026
  Receipt Date: 20121026
  Transmission Date: 20130627
  Serious: No
  Sender: FDA-Public Use
  Company Number: US-AMGEN-USASP2012049140

PATIENT
  Age: 45 Year
  Sex: Female
  Weight: 87.08 kg

DRUGS (6)
  1. ENBREL [Suspect]
     Indication: RHEUMATOID ARTHRITIS
     Dosage: 50 mg, qwk
     Route: 058
  2. METHOTREXATE [Concomitant]
     Dosage: 2.5 mg, UNK
     Route: 048
  3. CELEBREX [Concomitant]
     Dosage: 200 mg, UNK
     Route: 048
  4. FOLIC ACID [Concomitant]
     Dosage: UNK
     Route: 048
  5. VICODIN [Concomitant]
     Dosage: 5-500 mg
     Route: 048
  6. AMBIEN [Concomitant]
     Dosage: 10 mg, UNK
     Route: 048

REACTIONS (2)
  - Migraine [Unknown]
  - White blood cell count increased [Unknown]
